FAERS Safety Report 13387545 (Version 1)
Quarter: 2017Q1

REPORT INFORMATION
  Report Type: Spontaneous
  Country: US (occurrence: US)
  Receive Date: 20170330
  Receipt Date: 20170330
  Transmission Date: 20170429
  Serious: No
  Sender: FDA-Public Use
  Company Number: US-MYLANLABS-2016M1043441

PATIENT
  Age: 62 Year
  Sex: Female
  Weight: 64.4 kg

DRUGS (1)
  1. ESTRADIOL TRANSDERMAL SYSTEM [Suspect]
     Active Substance: ESTRADIOL
     Indication: MENOPAUSE
     Dosage: 0.05 MGDAY, CHANGE WEEKLY
     Route: 062
     Dates: start: 20160907, end: 20160928

REACTIONS (3)
  - Application site urticaria [Recovering/Resolving]
  - Application site erythema [Recovering/Resolving]
  - Application site pruritus [Recovering/Resolving]

NARRATIVE: CASE EVENT DATE: 201609
